FAERS Safety Report 8282833-7 (Version None)
Quarter: 2012Q2

REPORT INFORMATION
  Report Type: 
  Country: None (occurrence: None)
  Receive Date: 20120413
  Receipt Date: 20120404
  Transmission Date: 20120825
  Serious: Yes (Hospitalization)
  Sender: FDA-Public Use
  Company Number: DE-VERTEX PHARMACEUTICALS INC.-000000000000000419

PATIENT
  Sex: Female
  Weight: 65.3 kg

DRUGS (6)
  1. PEGASYS [Concomitant]
     Indication: HEPATITIS C
     Route: 058
     Dates: start: 20120110, end: 20120325
  2. COPEGUS [Concomitant]
     Indication: HEPATITIS C
     Dates: start: 20120110, end: 20120326
  3. ALDACTONE [Concomitant]
     Dates: end: 20120326
  4. TORSEMIDE [Concomitant]
     Dates: end: 20120326
  5. PANTOPRAZOLE [Concomitant]
  6. INCIVO (TELAPREVIR) [Suspect]
     Indication: HEPATITIS C
     Dosage: DOSAGE FORM: TABLET
     Route: 048
     Dates: start: 20120110, end: 20120326

REACTIONS (1)
  - DRUG RASH WITH EOSINOPHILIA AND SYSTEMIC SYMPTOMS [None]
